FAERS Safety Report 23146268 (Version 1)
Quarter: 2023Q4

REPORT INFORMATION
  Report Type: Spontaneous
  Country: FR (occurrence: FR)
  Receive Date: 20231104
  Receipt Date: 20231104
  Transmission Date: 20240109
  Serious: Yes (Hospitalization, Other)
  Sender: FDA-Public Use
  Company Number: FR-AFSSAPS-NT2023001163

PATIENT
  Age: 69 Year
  Sex: Female
  Weight: 50.7 kg

DRUGS (1)
  1. AMOXICILLIN [Suspect]
     Active Substance: AMOXICILLIN
     Indication: Listeriosis
     Dosage: 14 GRAM, ONCE A DAY
     Route: 042
     Dates: start: 20231005

REACTIONS (2)
  - Crystalluria [Recovered/Resolved]
  - Acute kidney injury [Recovering/Resolving]

NARRATIVE: CASE EVENT DATE: 20231012
